FAERS Safety Report 19573272 (Version 2)
Quarter: 2021Q3

REPORT INFORMATION
  Report Type: Spontaneous
  Country: DE (occurrence: DE)
  Receive Date: 20210717
  Receipt Date: 20210727
  Transmission Date: 20211014
  Serious: Yes (Other)
  Sender: FDA-Public Use
  Company Number: DE-AUROBINDO-AUR-APL-2021-029994

PATIENT
  Age: 34 Year
  Sex: Male
  Weight: 80 kg

DRUGS (9)
  1. ATOMOXETIN [Suspect]
     Active Substance: ATOMOXETINE HYDROCHLORIDE
     Indication: PRODUCT USED FOR UNKNOWN INDICATION
     Dosage: 40 MILLIGRAM, ONCE A DAY
     Route: 065
     Dates: start: 20200619, end: 20200623
  2. QUETIAPINE. [Suspect]
     Active Substance: QUETIAPINE
     Dosage: 200 MILLIGRAM, ONCE A DAY
     Route: 065
     Dates: start: 20200625, end: 20200628
  3. NOVALGIN [Concomitant]
     Indication: PRODUCT USED FOR UNKNOWN INDICATION
     Dosage: 4 GRAM, ONCE A DAY
     Route: 065
     Dates: start: 20200619
  4. ATOMOXETIN [Suspect]
     Active Substance: ATOMOXETINE HYDROCHLORIDE
     Dosage: 65 MILLIGRAM, ONCE A DAY
     Route: 065
     Dates: start: 20200625, end: 20200910
  5. QUETIAPINE. [Suspect]
     Active Substance: QUETIAPINE
     Dosage: 300 MILLIGRAM, ONCE A DAY(FROM HERE START OF THE UAW)
     Route: 065
     Dates: start: 20200629, end: 20200917
  6. ATOMOXETIN [Suspect]
     Active Substance: ATOMOXETINE HYDROCHLORIDE
     Dosage: 60 MILLIGRAM, ONCE A DAY
     Route: 065
     Dates: start: 20200624, end: 20200624
  7. QUETIAPINE. [Suspect]
     Active Substance: QUETIAPINE
     Indication: PRODUCT USED FOR UNKNOWN INDICATION
     Dosage: 100 MILLIGRAM, ONCE A DAY
     Route: 065
     Dates: start: 20200622, end: 20200624
  8. THIAMIN [Concomitant]
     Active Substance: THIAMINE
     Indication: PRODUCT USED FOR UNKNOWN INDICATION
     Dosage: 100 MILLIGRAM, ONCE A DAY
     Route: 065
     Dates: start: 20200619
  9. QUETIAPINE. [Suspect]
     Active Substance: QUETIAPINE
     Dosage: 400 MILLIGRAM, ONCE A DAY(FOR THE TIME BEING)
     Route: 065
     Dates: start: 20200918

REACTIONS (7)
  - Irritability [Recovered/Resolved]
  - Ejaculation disorder [Recovering/Resolving]
  - Erectile dysfunction [Recovering/Resolving]
  - Pruritus [Recovered/Resolved]
  - Dermatitis allergic [Recovered/Resolved]
  - Urinary retention [Unknown]
  - Pustule [Recovered/Resolved]

NARRATIVE: CASE EVENT DATE: 20200620
